FAERS Safety Report 15727457 (Version 1)
Quarter: 2018Q4

REPORT INFORMATION
  Report Type: Spontaneous
  Country: ES (occurrence: ES)
  Receive Date: 20181217
  Receipt Date: 20181217
  Transmission Date: 20190205
  Serious: Yes (Life-Threatening, Hospitalization, Other)
  Sender: FDA-Public Use
  Company Number: ES-ASTRAZENECA-2018SF61585

PATIENT
  Age: 35 Year
  Sex: Female

DRUGS (5)
  1. IRON [Suspect]
     Active Substance: IRON
     Indication: SELF-MEDICATION
     Route: 048
     Dates: start: 201810
  2. METAMIZOL [Suspect]
     Active Substance: METAMIZOLE SODIUM
     Route: 048
     Dates: start: 201810
  3. FORTECORTIN [Suspect]
     Active Substance: DEXAMETHASONE
     Indication: DENTAL IMPLANTATION
     Dosage: 4.0MG UNKNOWN
     Dates: start: 2018
  4. PLANTAGO AFRA [Suspect]
     Active Substance: HERBALS
     Indication: SELF-MEDICATION
     Route: 048
     Dates: start: 201810
  5. ZOMIG [Suspect]
     Active Substance: ZOLMITRIPTAN
     Indication: MIGRAINE
     Dosage: 3 TABLETS OCCASIONALLY
     Route: 048
     Dates: start: 2015

REACTIONS (2)
  - Hepatitis toxic [Unknown]
  - Hepatic encephalopathy [Unknown]

NARRATIVE: CASE EVENT DATE: 20181105
